FAERS Safety Report 9281756 (Version 2)
Quarter: 2013Q3

REPORT INFORMATION
  Report Type: Spontaneous
  Country: US (occurrence: US)
  Receive Date: 20130510
  Receipt Date: 20130813
  Transmission Date: 20140515
  Serious: Yes (Other)
  Sender: FDA-Public Use
  Company Number: US-B.I. PHARMACEUTICALS,INC./RIDGEFIELD-2013-BI-12867BP

PATIENT
  Age: 82 Year
  Sex: Male
  Weight: 88.1 kg

DRUGS (8)
  1. PRADAXA [Suspect]
     Indication: ANTICOAGULANT THERAPY
     Dosage: 300 MG
     Route: 048
     Dates: start: 20110303, end: 20110510
  2. ASPIRIN [Concomitant]
     Dosage: 81 MG
     Route: 048
  3. PEPCID [Concomitant]
     Dosage: 40 MG
     Route: 048
  4. FOLIC ACID [Concomitant]
     Dosage: 0.4 MG
     Route: 048
  5. METOPROLOL ER [Concomitant]
     Dosage: 25 MG
     Route: 048
  6. FUROSEMIDE [Concomitant]
     Dosage: 40 MG
     Route: 048
  7. LEVOTHYROXINE [Concomitant]
     Dosage: 125 MCG
     Route: 048
  8. CARISOPRODOL [Concomitant]
     Dosage: 350 MG
     Route: 048

REACTIONS (4)
  - Gastrointestinal haemorrhage [Unknown]
  - Anaemia [Unknown]
  - Haemorrhagic disorder [Unknown]
  - Coagulopathy [Unknown]
